FAERS Safety Report 11133376 (Version 1)
Quarter: 2015Q2

REPORT INFORMATION
  Report Type: Spontaneous
  Country: US (occurrence: US)
  Receive Date: 20150522
  Receipt Date: 20150522
  Transmission Date: 20150821
  Serious: No
  Sender: FDA-Public Use
  Company Number: US-MALLINCKRODT-QSC-2014-0463

PATIENT
  Age: 77 Year
  Sex: Female
  Weight: 62.59 kg

DRUGS (4)
  1. EVOXAC [Concomitant]
     Active Substance: CEVIMELINE HYDROCHLORIDE
     Dosage: 30 MG, UNK
     Dates: start: 2011
  2. H.P. ACTHAR [Suspect]
     Active Substance: CORTICOTROPIN
     Indication: RHEUMATOID ARTHRITIS
     Dosage: 0.8 ML, BIW
     Dates: start: 20140630, end: 20140707
  3. PANTOPRAZOLE [Concomitant]
     Active Substance: PANTOPRAZOLE SODIUM
     Dosage: 40 MG, UNK
     Dates: start: 2004
  4. RITUXAN [Concomitant]
     Active Substance: RITUXIMAB
     Dosage: UNK
     Dates: start: 2012

REACTIONS (6)
  - Breast pain [Recovering/Resolving]
  - Abdominal distension [Recovering/Resolving]
  - Pollakiuria [Recovering/Resolving]
  - Weight increased [Recovering/Resolving]
  - Lymph node pain [Recovering/Resolving]
  - Back pain [Recovering/Resolving]

NARRATIVE: CASE EVENT DATE: 2014
